FAERS Safety Report 9578319 (Version 1)
Quarter: 2013Q4

REPORT INFORMATION
  Report Type: Spontaneous
  Country: US (occurrence: US)
  Receive Date: 20131001
  Receipt Date: 20131001
  Transmission Date: 20140711
  Serious: No
  Sender: FDA-Public Use
  Company Number: US-AMGEN-USASP2013012456

PATIENT
  Sex: Female

DRUGS (16)
  1. ENBREL [Suspect]
     Indication: PRODUCT USED FOR UNKNOWN INDICATION
     Dosage: 50 MG, QWK
     Route: 058
  2. FLUOXETINE [Concomitant]
     Dosage: 20 MG, UNK
  3. FOLIC ACID [Concomitant]
     Dosage: 1 MG, UNK
  4. OSCAL 500 + D [Concomitant]
     Dosage: 500/200
  5. CENTRUM                            /07499601/ [Concomitant]
     Dosage: UNK
  6. METHOTREXATE [Concomitant]
     Dosage: 2.5 MG, UNK
  7. ESTRADIOL [Concomitant]
     Dosage: 0.1 MG, UNK
  8. PLAQUENIL                          /00072602/ [Concomitant]
     Dosage: 200 MG, UNK
  9. LASIX                              /00032601/ [Concomitant]
     Dosage: 40 MG, UNK
  10. NEURONTIN [Concomitant]
     Dosage: 100 MG, UNK
  11. KLOR-CON [Concomitant]
     Dosage: 8 TAB 8 MEQ ER
  12. MULTIVITAMINS, PLAIN [Concomitant]
     Dosage: UNK
  13. GABAPENTIN [Concomitant]
     Dosage: 100 MG, UNK
  14. DEXILANT [Concomitant]
     Dosage: 60 MG, DR
  15. ULTRACET [Concomitant]
     Dosage: UNK, 37.5-325
  16. PREDNISONE [Concomitant]
     Dosage: UNK

REACTIONS (3)
  - Pneumonia [Unknown]
  - Influenza [Unknown]
  - Bronchitis [Unknown]
